FAERS Safety Report 5879448-4 (Version None)
Quarter: 2008Q3

REPORT INFORMATION
  Report Type: 
  Country: None (occurrence: None)
  Receive Date: 20080912
  Receipt Date: 20080909
  Transmission Date: 20090109
  Serious: Yes (Hospitalization)
  Sender: FDA-Public Use
  Company Number: D0058049A

PATIENT
  Age: 54 Year
  Sex: Male
  Weight: 75 kg

DRUGS (4)
  1. ZEFFIX [Suspect]
     Indication: HEPATITIS B
     Dosage: 100MG IN THE MORNING
     Route: 048
     Dates: start: 20080501
  2. ASPIRIN [Concomitant]
     Dosage: 100MG IN THE MORNING
     Route: 048
  3. GLUCOBAY [Concomitant]
     Indication: TYPE 2 DIABETES MELLITUS
     Dosage: 50MG THREE TIMES PER DAY
     Route: 048
  4. PANTOZOL [Concomitant]
     Dosage: 40MCG IN THE MORNING
     Route: 048
     Dates: start: 20080625

REACTIONS (4)
  - GUILLAIN-BARRE SYNDROME [None]
  - MYALGIA [None]
  - PARAPARESIS [None]
  - POLYNEUROPATHY [None]
